FAERS Safety Report 6470579-7 (Version None)
Quarter: 2009Q4

REPORT INFORMATION
  Report Type: 
  Country: None (occurrence: None)
  Receive Date: 20091203
  Receipt Date: 20090615
  Transmission Date: 20100525
  Serious: No
  Sender: FDA-Public Use
  Company Number: US-ABBOTT-09P-163-0580060-00

PATIENT
  Sex: Female
  Weight: 83.99 kg

DRUGS (3)
  1. MERIDIA [Suspect]
     Indication: WEIGHT DECREASED
     Route: 048
     Dates: start: 20040301, end: 20040901
  2. MERIDIA [Suspect]
     Route: 048
     Dates: start: 20050101, end: 20050601
  3. MERIDIA [Suspect]
     Route: 048
     Dates: start: 20050101, end: 20090501

REACTIONS (4)
  - ARTHRALGIA [None]
  - DRUG INEFFECTIVE [None]
  - INCORRECT DRUG ADMINISTRATION DURATION [None]
  - PAIN IN EXTREMITY [None]
